FAERS Safety Report 17155882 (Version 7)
Quarter: 2020Q2

REPORT INFORMATION
  Report Type: Report from Study
  Country: US (occurrence: US)
  Receive Date: 20191215
  Receipt Date: 20200505
  Transmission Date: 20200713
  Serious: Yes (Other)
  Sender: FDA-Public Use
  Company Number: NVSC2019US070211

PATIENT
  Age: 58 Year
  Sex: Female

DRUGS (2)
  1. GILENYA [Suspect]
     Active Substance: FINGOLIMOD HYDROCHLORIDE
     Dosage: 0.4 MG, QD
     Route: 048
     Dates: start: 20191204
  2. GILENYA [Suspect]
     Active Substance: FINGOLIMOD HYDROCHLORIDE
     Indication: MULTIPLE SCLEROSIS
     Dosage: 0.5 MG, QD
     Route: 048
     Dates: start: 20191211

REACTIONS (33)
  - Hallucination [Unknown]
  - Contusion [Unknown]
  - Feeling abnormal [Unknown]
  - Burning sensation [Unknown]
  - Incorrect dose administered [Unknown]
  - Pulse abnormal [Unknown]
  - Scab [Unknown]
  - Immunodeficiency [Unknown]
  - Memory impairment [Unknown]
  - Visual impairment [Unknown]
  - Dehydration [Unknown]
  - Product dose omission [Unknown]
  - Heart rate decreased [Unknown]
  - Urinary tract infection [Not Recovered/Not Resolved]
  - Pruritus [Unknown]
  - Secondary progressive multiple sclerosis [Unknown]
  - Confusional state [Unknown]
  - Somnolence [Unknown]
  - Ligament sprain [Unknown]
  - Arthralgia [Unknown]
  - Dizziness [Unknown]
  - Infection [Unknown]
  - Gait inability [Unknown]
  - Influenza [Unknown]
  - Ingrowing nail [Unknown]
  - Herpes zoster [Unknown]
  - Herpes virus infection [Unknown]
  - Mental disorder [Unknown]
  - Fear [Unknown]
  - Fatigue [Unknown]
  - Vomiting [Unknown]
  - Fall [Unknown]
  - Tremor [Unknown]

NARRATIVE: CASE EVENT DATE: 201912
